FAERS Safety Report 11605537 (Version 1)
Quarter: 2015Q4

REPORT INFORMATION
  Report Type: Spontaneous
  Country: US (occurrence: US)
  Receive Date: 20151007
  Receipt Date: 20151007
  Transmission Date: 20160304
  Serious: Yes (Death, Hospitalization)
  Sender: FDA-Public Use
  Company Number: US-SA-2015SA152450

PATIENT
  Age: 81 Year
  Sex: Female

DRUGS (8)
  1. MULTAQ [Suspect]
     Active Substance: DRONEDARONE
     Route: 048
  2. MORPHINE SULFATE. [Concomitant]
     Active Substance: MORPHINE SULFATE
  3. BACTRIM [Suspect]
     Active Substance: SULFAMETHOXAZOLE\TRIMETHOPRIM
     Route: 065
  4. XIFAXAN [Concomitant]
     Active Substance: RIFAXIMIN
  5. MULTAQ [Suspect]
     Active Substance: DRONEDARONE
     Route: 048
  6. MYCOSTATIN [Concomitant]
     Active Substance: NYSTATIN
  7. LACTULOSE. [Concomitant]
     Active Substance: LACTULOSE
  8. SYNTHROID [Concomitant]
     Active Substance: LEVOTHYROXINE SODIUM

REACTIONS (6)
  - Renal impairment [Unknown]
  - Hepatic function abnormal [Unknown]
  - Hepatorenal syndrome [Fatal]
  - Atrial fibrillation [Unknown]
  - Hepatic failure [Fatal]
  - Jaundice [Unknown]
